FAERS Safety Report 15982645 (Version 1)
Quarter: 2019Q1

REPORT INFORMATION
  Report Type: Spontaneous
  Country: FR (occurrence: FR)
  Receive Date: 20190219
  Receipt Date: 20190219
  Transmission Date: 20190418
  Serious: Yes (Hospitalization)
  Sender: FDA-Public Use
  Company Number: FR-TEVA-2019-FR-1012837

PATIENT
  Age: 82 Year
  Sex: Male
  Weight: 54 kg

DRUGS (2)
  1. ALBUMINE HUMAINE (SOLUTION D^) ((MAMMIFERE/HUMAIN/PLASMA)) [Concomitant]
     Indication: STARVATION
     Route: 042
  2. PANTOPRAZOLE [Suspect]
     Active Substance: PANTOPRAZOLE
     Indication: STRESS ULCER
     Dosage: 40 MILLIGRAM DAILY;
     Route: 048
     Dates: start: 20181204, end: 20181213

REACTIONS (5)
  - Agranulocytosis [Recovered/Resolved]
  - Pancytopenia [Recovering/Resolving]
  - Thrombocytopenia [Recovering/Resolving]
  - Leukopenia [Recovering/Resolving]
  - Neutropenia [Recovering/Resolving]

NARRATIVE: CASE EVENT DATE: 20181213
